FAERS Safety Report 6011972-6 (Version None)
Quarter: 2008Q4

REPORT INFORMATION
  Report Type: 
  Country: None (occurrence: None)
  Receive Date: 20081218
  Receipt Date: 20081015
  Transmission Date: 20090506
  Serious: No
  Sender: FDA-Public Use
  Company Number: US-ASTRAZENECA-2008UW22891

PATIENT
  Age: 66 Year
  Sex: Female

DRUGS (5)
  1. CRESTOR [Suspect]
     Indication: BLOOD CHOLESTEROL INCREASED
     Route: 048
     Dates: start: 20081014
  2. MIRAPEX [Concomitant]
  3. MECLIZINE [Concomitant]
  4. ATENOLOL [Concomitant]
     Route: 048
  5. DETROL [Concomitant]

REACTIONS (1)
  - INSOMNIA [None]
